FAERS Safety Report 8541607-X (Version None)
Quarter: 2012Q3

REPORT INFORMATION
  Report Type: 
  Country: None (occurrence: None)
  Receive Date: 20120726
  Receipt Date: 20110923
  Transmission Date: 20120928
  Serious: No
  Sender: FDA-Public Use
  Company Number: GB-ASTRAZENECA-2011SE57344

PATIENT
  Age: 44 Year
  Sex: Male
  Weight: 79.4 kg

DRUGS (2)
  1. SEROQUEL [Suspect]
     Dosage: AT NIGHT
     Route: 048
     Dates: start: 20110919
  2. DEPAKOTE [Concomitant]
     Indication: BIPOLAR DISORDER
     Route: 048
     Dates: start: 20110919

REACTIONS (9)
  - SPEECH DISORDER [None]
  - SOMATOFORM DISORDER [None]
  - JOINT STIFFNESS [None]
  - DISORIENTATION [None]
  - HALLUCINATION [None]
  - SOMNOLENCE [None]
  - WRONG TECHNIQUE IN DRUG USAGE PROCESS [None]
  - DRY MOUTH [None]
  - DIZZINESS [None]
